FAERS Safety Report 8158950-9 (Version None)
Quarter: 2012Q1

REPORT INFORMATION
  Report Type: 
  Country: None (occurrence: None)
  Receive Date: 20120223
  Receipt Date: 20120220
  Transmission Date: 20120608
  Serious: Yes (Life-Threatening)
  Sender: FDA-Public Use
  Company Number: US-SANOFI-AVENTIS-2011SA077661

PATIENT
  Age: 70 Year
  Sex: Female

DRUGS (8)
  1. PYRIDOXINE HYDROCHLORIDE [Suspect]
     Indication: BREAST CANCER
     Route: 048
  2. DOCETAXEL [Suspect]
     Indication: BREAST CANCER
     Route: 042
  3. TRASTUZUMAB [Suspect]
     Indication: BREAST CANCER
     Dosage: LOADING DOSE
     Route: 042
     Dates: start: 20011105, end: 20011105
  4. DEXAMETHASONE [Suspect]
     Route: 065
  5. GLIPIZIDE [Concomitant]
  6. DOXORUBICIN HCL [Suspect]
     Indication: BREAST CANCER
     Route: 042
  7. DOCETAXEL [Suspect]
     Dosage: 75MG/M2 OR 30MG/M2 OVER ON DAY I AND ONCE EVERY
     Route: 042
  8. TRASTUZUMAB [Suspect]
     Dosage: OVER 30 MINUTES
     Route: 042
     Dates: start: 20011105

REACTIONS (1)
  - HYPERGLYCAEMIA [None]
